FAERS Safety Report 14557804 (Version 1)
Quarter: 2018Q1

REPORT INFORMATION
  Report Type: Spontaneous
  Country: US (occurrence: US)
  Receive Date: 20180220
  Receipt Date: 20180220
  Transmission Date: 20180509
  Serious: No
  Sender: FDA-Public Use
  Company Number: None

PATIENT
  Age: 59 Year
  Sex: Female

DRUGS (1)
  1. CAPECITABINE TAB 500MG [Suspect]
     Active Substance: CAPECITABINE
     Dosage: 2000MG BID FOR 7 DAYS ORAL
     Route: 048

REACTIONS (3)
  - Product substitution issue [None]
  - Rash [None]
  - Skin discolouration [None]

NARRATIVE: CASE EVENT DATE: 20180219
